FAERS Safety Report 22303545 (Version 1)
Quarter: 2023Q2

REPORT INFORMATION
  Report Type: Report from Study
  Country: BR (occurrence: BR)
  Receive Date: 20230510
  Receipt Date: 20230510
  Transmission Date: 20230721
  Serious: Yes (Hospitalization)
  Sender: FDA-Public Use
  Company Number: BR-JNJFOC-20230508923

PATIENT
  Age: 12 Year
  Sex: Male
  Weight: 79 kg

DRUGS (2)
  1. REMICADE [Suspect]
     Active Substance: INFLIXIMAB
     Indication: Crohn^s disease
     Route: 041
     Dates: start: 20220615
  2. REMICADE [Suspect]
     Active Substance: INFLIXIMAB
     Dosage: 4 VIALS EVERY 30 DAYS
     Route: 041

REACTIONS (2)
  - Cholelithiasis [Unknown]
  - Off label use [Unknown]
